FAERS Safety Report 5642407-0 (Version None)
Quarter: 2008Q1

REPORT INFORMATION
  Report Type: 
  Country: None (occurrence: None)
  Receive Date: 20080227
  Receipt Date: 20080227
  Transmission Date: 20080703
  Serious: Yes (Hospitalization, Other)
  Sender: FDA-Public Use
  Company Number: None

PATIENT
  Age: 58 Year
  Sex: Female

DRUGS (5)
  1. FOSAMAX [Suspect]
     Indication: OSTEOPENIA
     Dosage: 70MG WEEKLY
     Dates: end: 20060101
  2. HYDROCHLOROTHIAZIDE [Concomitant]
  3. ANTIBIOTICS (Z-PAK) [Concomitant]
  4. CEPHALEXIN [Concomitant]
  5. MOTRIN [Concomitant]

REACTIONS (6)
  - BONE DISORDER [None]
  - DRUG TOXICITY [None]
  - OSTEOMYELITIS [None]
  - PAIN [None]
  - SWELLING [None]
  - WOUND SECRETION [None]
